FAERS Safety Report 9280194 (Version 1)
Quarter: 2013Q2

REPORT INFORMATION
  Report Type: Spontaneous
  Country: US (occurrence: None)
  Receive Date: 20130507
  Receipt Date: 20130507
  Transmission Date: 20140414
  Serious: No
  Sender: FDA-Public Use
  Company Number: None

PATIENT
  Age: 60 Year
  Sex: Female
  Weight: 65.77 kg

DRUGS (1)
  1. FENTANYL TRANSDERMAL PATCH [Suspect]
     Dosage: EVERY 72 HRS
     Dates: start: 20130211, end: 20130311

REACTIONS (2)
  - Product adhesion issue [None]
  - Wrong technique in drug usage process [None]
